FAERS Safety Report 13925488 (Version 2)
Quarter: 2017Q3

REPORT INFORMATION
  Report Type: Spontaneous
  Country: US (occurrence: US)
  Receive Date: 20170831
  Receipt Date: 20170913
  Transmission Date: 20171127
  Serious: Yes (Other)
  Sender: FDA-Public Use
  Company Number: US-STANDARD HOMEOPATHIC COMPANY-2025380

PATIENT
  Age: 3 Month
  Sex: Female

DRUGS (2)
  1. BABY TEETHING (HYLAND HOMEOPATHIC) [Suspect]
     Active Substance: HOMEOPATHICS
     Indication: ANTIPYRESIS
     Route: 048
     Dates: start: 20170811, end: 20170818
  2. BABY TEETHING (HYLAND HOMEOPATHIC) [Suspect]
     Active Substance: HOMEOPATHICS
     Indication: TEETHING
     Route: 048
     Dates: start: 20170811, end: 20170818

REACTIONS (6)
  - Dizziness [None]
  - Balance disorder [None]
  - Fall [None]
  - Abnormal behaviour [None]
  - Accidental exposure to product by child [None]
  - Contusion [None]

NARRATIVE: CASE EVENT DATE: 20170818
